FAERS Safety Report 25100713 (Version 1)
Quarter: 2025Q1

REPORT INFORMATION
  Report Type: Report from Study
  Country: US (occurrence: US)
  Receive Date: 20250320
  Receipt Date: 20250320
  Transmission Date: 20250409
  Serious: Yes (Other)
  Sender: PFIZER
  Company Number: US-PFIZER INC-202400333413

PATIENT
  Age: 39 Year
  Sex: Female
  Weight: 86.168 kg

DRUGS (43)
  1. LORBRENA [Interacting]
     Active Substance: LORLATINIB
     Indication: Lung neoplasm malignant
     Dosage: 100 MG, DAILY
     Route: 048
     Dates: start: 20241215
  2. LORBRENA [Interacting]
     Active Substance: LORLATINIB
     Dosage: TAKE 3 TABLETS ONCE DAY
     Route: 048
  3. LORBRENA [Interacting]
     Active Substance: LORLATINIB
  4. LORBRENA [Interacting]
     Active Substance: LORLATINIB
     Dosage: 75 MG, DAILY
     Dates: start: 20241215
  5. CANNABIS SATIVA SUBSP. INDICA TOP [Interacting]
     Active Substance: CANNABIS SATIVA SUBSP. INDICA TOP
  6. FOLIC ACID [Concomitant]
     Active Substance: FOLIC ACID
  7. HERBALS\TURMERIC [Concomitant]
     Active Substance: HERBALS\TURMERIC
  8. ASCORBIC ACID [Concomitant]
     Active Substance: ASCORBIC ACID
  9. VITAMIN B COMPLEX [Concomitant]
     Active Substance: CYANOCOBALAMIN\DEXPANTHENOL\NIACINAMIDE\PYRIDOXINE HYDROCHLORIDE\RIBOFLAVIN 5^-PHOSPHATE SODIUM\THIA
  10. BERBERINE COMPLEX [Concomitant]
  11. CALCIUM [Concomitant]
     Active Substance: CALCIUM
  12. MAGNESIUM [Concomitant]
     Active Substance: MAGNESIUM
  13. ZINC [Concomitant]
     Active Substance: ZINC
  14. VITAMIN D3 [Concomitant]
     Active Substance: CHOLECALCIFEROL
  15. CAYENNE PEPPER [Concomitant]
     Active Substance: CAPSICUM
  16. VITAMIN B6 [Concomitant]
     Active Substance: PYRIDOXINE HYDROCHLORIDE
  17. MELATONIN [Concomitant]
     Active Substance: MELATONIN
  18. EPIGALLOCATECHIN GALLATE [Concomitant]
     Active Substance: EPIGALLOCATECHIN GALLATE
  19. CASTOR OIL (WHITE) [Concomitant]
  20. FENBENDAZOLE [Concomitant]
     Active Substance: FENBENDAZOLE
  21. FISETIN [Concomitant]
     Active Substance: FISETIN
  22. FRANKINCENSE [Concomitant]
     Active Substance: FRANKINCENSE
  23. FUROSEMIDE [Concomitant]
     Active Substance: FUROSEMIDE
  24. GINGER ROOT [ZINGIBER OFFICINALE ROOT] [Concomitant]
  25. GLUTATHIONE [Concomitant]
     Active Substance: GLUTATHIONE
  26. HEMP [Concomitant]
     Active Substance: HEMP
  27. IVERMECTIN [Concomitant]
     Active Substance: IVERMECTIN
  28. LASIX [Concomitant]
     Active Substance: FUROSEMIDE
  29. DIETARY SUPPLEMENT\HERBALS\MILK THISTLE [Concomitant]
     Active Substance: MILK THISTLE
  30. MULLEIN [Concomitant]
  31. GARLIC [Concomitant]
     Active Substance: GARLIC
  32. NICOTINE TRANSDERMAL SYSTEM [Concomitant]
     Active Substance: NICOTINE
  33. OREGANO LEAF OIL [Concomitant]
     Active Substance: OREGANO LEAF OIL
  34. BOS TAURUS BILE [Concomitant]
     Active Substance: BOS TAURUS BILE
  35. GAS RELIEF [Concomitant]
     Active Substance: DIMETHICONE
  36. ACTIVATED CHARCOAL [Concomitant]
     Active Substance: ACTIVATED CHARCOAL
  37. DIETARY SUPPLEMENT\RESVERATROL [Concomitant]
     Active Substance: DIETARY SUPPLEMENT\RESVERATROL
  38. THYMOQUINONE [Concomitant]
     Active Substance: THYMOQUINONE
  39. PROBIOTICS NOS [Concomitant]
     Active Substance: PROBIOTICS NOS
  40. VITAMIN B17 [Concomitant]
  41. VITAMIN K1 [Concomitant]
     Active Substance: PHYTONADIONE
  42. MENATETRENONE [Concomitant]
     Active Substance: MENATETRENONE
  43. MISTLETOE EXTRACT [Concomitant]
     Active Substance: VISCUM ALBUM FRUITING TOP

REACTIONS (22)
  - Cannabis interaction [Not Recovered/Not Resolved]
  - Weight increased [Not Recovered/Not Resolved]
  - Localised oedema [Unknown]
  - Angina pectoris [Not Recovered/Not Resolved]
  - Gastrointestinal microorganism overgrowth [Not Recovered/Not Resolved]
  - Headache [Not Recovered/Not Resolved]
  - Blood cholesterol increased [Not Recovered/Not Resolved]
  - Blood triglycerides increased [Not Recovered/Not Resolved]
  - Arthralgia [Not Recovered/Not Resolved]
  - Abdominal distension [Not Recovered/Not Resolved]
  - Gastric dilatation [Not Recovered/Not Resolved]
  - Dysbiosis [Not Recovered/Not Resolved]
  - Oedema peripheral [Not Recovered/Not Resolved]
  - Diarrhoea [Not Recovered/Not Resolved]
  - Pulmonary pain [Not Recovered/Not Resolved]
  - Flatulence [Not Recovered/Not Resolved]
  - Constipation [Not Recovered/Not Resolved]
  - Toothache [Not Recovered/Not Resolved]
  - COVID-19 [Not Recovered/Not Resolved]
  - Head discomfort [Unknown]
  - Intentional product use issue [Unknown]
  - Intentional dose omission [Unknown]

NARRATIVE: CASE EVENT DATE: 20250110
